FAERS Safety Report 8246804-9 (Version None)
Quarter: 2012Q1

REPORT INFORMATION
  Report Type: 
  Country: None (occurrence: None)
  Receive Date: 20120330
  Receipt Date: 20120323
  Transmission Date: 20120608
  Serious: Yes (Other)
  Sender: FDA-Public Use
  Company Number: US-PFIZER INC-2012017165

PATIENT
  Sex: Female
  Weight: 77.098 kg

DRUGS (7)
  1. XALATAN [Suspect]
     Indication: GLAUCOMA
  2. XALATAN [Suspect]
     Indication: CATARACT
     Dosage: ^5 MG^ TWO TIMES A DAY
     Dates: start: 20100101, end: 20110501
  3. TRAVATAN [Suspect]
     Indication: EYE DISORDER
  4. ALBUTEROL [Concomitant]
     Dosage: UNK, AS NEEDED
  5. TRAVATAN [Suspect]
     Indication: GLAUCOMA
     Dosage: TWO TIMES A DAY
     Dates: start: 20110501
  6. MECLIZINE [Concomitant]
     Indication: VERTIGO
     Dosage: 25 MG, EVERY 8 HOURS
  7. ALBUTEROL [Concomitant]
     Indication: ASTHMA
     Dosage: UNK, DAILY

REACTIONS (2)
  - CATARACT [None]
  - INTRAOCULAR PRESSURE INCREASED [None]
